FAERS Safety Report 13767868 (Version 11)
Quarter: 2022Q1

REPORT INFORMATION
  Report Type: Spontaneous
  Country: US (occurrence: US)
  Receive Date: 20170719
  Receipt Date: 20220330
  Transmission Date: 20220424
  Serious: No
  Sender: FDA-Public Use
  Company Number: US-PFIZER INC-2017307754

PATIENT
  Age: 68 Year
  Sex: Female
  Weight: 77 kg

DRUGS (21)
  1. LYRICA [Suspect]
     Active Substance: PREGABALIN
     Indication: Fibromyalgia
     Dosage: 150 MG, 2X/DAY [TWICE A DAY]
     Route: 048
     Dates: start: 2015, end: 2015
  2. LYRICA [Suspect]
     Active Substance: PREGABALIN
     Indication: Neuropathy peripheral
     Dosage: 150 MG, 3X/DAY
     Route: 048
     Dates: start: 20151117
  3. LYRICA [Suspect]
     Active Substance: PREGABALIN
     Indication: Polyneuropathy
     Dosage: 2 DF, 1X/DAY (2 CAPSULES EVERY DAY AT BEDTIME)
     Route: 048
  4. LYRICA [Suspect]
     Active Substance: PREGABALIN
     Dosage: 3 DF, DAILY 3 CAPSULES DAILY (1 IN THE AM AND 2 AT NIGHT)
     Route: 048
  5. LYRICA [Suspect]
     Active Substance: PREGABALIN
     Dosage: 300 MG, DAILY (150 MG ORAL CAPSULE, 2 CAP, ORAL, HS (AT BEDTIME)
     Route: 048
  6. LYRICA [Suspect]
     Active Substance: PREGABALIN
     Dosage: 150 MG, 1X/DAY 1 CAP, ORAL, QAM (EVERY MORNING; EVERY DAY BEFORE NOON)
     Route: 048
  7. LYRICA [Suspect]
     Active Substance: PREGABALIN
     Dosage: 200 MG, 1X/DAY 200 MG = 1 CAP, ORAL, HS (AT BEDTIME)
     Route: 048
  8. PANTOPRAZOLE [Concomitant]
     Active Substance: PANTOPRAZOLE
     Indication: Gastrooesophageal reflux disease
     Dosage: 40MG, ONCE A DAY
     Dates: start: 2014
  9. METOPROLOL [Concomitant]
     Active Substance: METOPROLOL
     Indication: Hypertension
     Dosage: 50 MG, 2X/DAY
  10. MINOXIDIL [Concomitant]
     Active Substance: MINOXIDIL
     Indication: Hypertension
     Dosage: 2.5 MG, 2X/DAY
     Dates: start: 2015
  11. BUMETANIDE [Concomitant]
     Active Substance: BUMETANIDE
     Indication: Hypertension
     Dosage: 2 MG, 2X/DAY
  12. AMILORIDE [Concomitant]
     Active Substance: AMILORIDE
     Indication: Hypertension
     Dosage: 5 MG, 1X/DAY
  13. HYDROCHLOROTHIAZIDE [Concomitant]
     Active Substance: HYDROCHLOROTHIAZIDE
     Indication: Hypertension
     Dosage: 25 MG, 1X/DAY
     Dates: start: 201703
  14. HYDROCODONE BITARTRATE AND ACETAMINOPHEN [Concomitant]
     Active Substance: ACETAMINOPHEN\HYDROCODONE BITARTRATE
     Indication: Back pain
     Dosage: ONE AND ONE HALF TABLET (DF) THREE TIMES A DAY
  15. FENTANYL [Concomitant]
     Active Substance: FENTANYL
     Indication: Pain
     Dosage: UNK
     Dates: start: 201705, end: 2017
  16. FENTANYL [Concomitant]
     Active Substance: FENTANYL
     Dosage: ONE PATCH (DF) CHANGED EVERY THREE DAYS
     Route: 062
     Dates: start: 201706
  17. LORAZEPAM [Concomitant]
     Active Substance: LORAZEPAM
     Indication: Anxiety
     Dosage: 1MG, THREE TIMES DAILY AS NEEDED
     Dates: start: 2014
  18. ZALEPLON [Concomitant]
     Active Substance: ZALEPLON
     Indication: Insomnia
     Dosage: 10MG, AT BEDTIME
     Dates: start: 201706
  19. PROMETHAZINE [Concomitant]
     Active Substance: PROMETHAZINE HYDROCHLORIDE
     Indication: Nausea
     Dosage: 25MG, EVERY 4-6 HOURS AS NEEDED
     Route: 048
  20. POTASSIUM CHLORIDE [Concomitant]
     Active Substance: POTASSIUM CHLORIDE
     Indication: Electrolyte substitution therapy
     Dosage: 4 DF, 1X/DAY 4 TABLETS (DF), ONCE DAILY
  21. VITAMIN D [Concomitant]
     Active Substance: VITAMIN D NOS
     Indication: Vitamin D deficiency
     Dosage: 50000 IU, TWICE A MONTH
     Dates: start: 201704

REACTIONS (5)
  - Drug ineffective [Unknown]
  - Stress [Unknown]
  - Weight increased [Unknown]
  - Drug hypersensitivity [Unknown]
  - Malaise [Unknown]
